FAERS Safety Report 4814313-2 (Version None)
Quarter: 2005Q4

REPORT INFORMATION
  Report Type: 
  Country: None (occurrence: None)
  Receive Date: 20051028
  Receipt Date: 20050802
  Transmission Date: 20060501
  Serious: No
  Sender: FDA-Public Use
  Company Number: US-GLAXOSMITHKLINE-A0568803A

PATIENT
  Age: 12 Year
  Sex: Male
  Weight: 63.6 kg

DRUGS (4)
  1. ADVAIR DISKUS 100/50 [Suspect]
     Indication: ASTHMA
  2. SINGULAIR [Concomitant]
  3. CLARINEX [Concomitant]
  4. NASACORT [Concomitant]
     Dosage: 2SPR PER DAY
     Route: 055

REACTIONS (1)
  - ACNE [None]
